FAERS Safety Report 17153915 (Version 1)
Quarter: 2019Q4

REPORT INFORMATION
  Report Type: Spontaneous
  Country: CN (occurrence: CN)
  Receive Date: 20191213
  Receipt Date: 20191213
  Transmission Date: 20200122
  Serious: Yes (Other)
  Sender: FDA-Public Use
  Company Number: CN-009507513-1912CHN004210

PATIENT
  Age: 52 Year
  Sex: Male
  Weight: 75 kg

DRUGS (5)
  1. TIENAM [Suspect]
     Active Substance: CILASTATIN SODIUM\IMIPENEM
     Dosage: 500 MILLIGRAM, ONCE
     Dates: start: 20191119, end: 20191119
  2. NIMESULIDE [Suspect]
     Active Substance: NIMESULIDE
     Indication: PYREXIA
     Dosage: 50 MILLIGRAM WAS ADMINISTERED TWICE ON 18-NOV-2019 AND ONCE ON 19-NOV-2019
     Route: 048
     Dates: start: 20191118, end: 20191119
  3. TIENAM [Suspect]
     Active Substance: CILASTATIN SODIUM\IMIPENEM
     Indication: ANTI-INFECTIVE THERAPY
     Dosage: 500 MILLIGRAM (0.5 G), Q8H
     Route: 042
     Dates: start: 20191111, end: 20191118
  4. TAZOCIN (PIPERACILLIN SODIUM (+) TAZOBACTAM SODIUM) [Suspect]
     Active Substance: PIPERACILLIN SODIUM\TAZOBACTAM SODIUM
     Dosage: 4.5 GRAM, Q8H
     Dates: start: 20191118, end: 20191118
  5. TAZOCIN (PIPERACILLIN SODIUM (+) TAZOBACTAM SODIUM) [Suspect]
     Active Substance: PIPERACILLIN SODIUM\TAZOBACTAM SODIUM
     Indication: ANTI-INFECTIVE THERAPY
     Dosage: 4.5 GRAM, Q8H (IV GTT)
     Route: 041
     Dates: start: 20191029, end: 20191111

REACTIONS (2)
  - Pyrexia [Recovering/Resolving]
  - Deafness bilateral [Recovering/Resolving]

NARRATIVE: CASE EVENT DATE: 20191118
